FAERS Safety Report 7608593-8 (Version None)
Quarter: 2011Q3

REPORT INFORMATION
  Report Type: 
  Country: None (occurrence: None)
  Receive Date: 20110714
  Receipt Date: 20110711
  Transmission Date: 20111222
  Serious: Yes (Death, Other)
  Sender: FDA-Public Use
  Company Number: PHHY2011BR61804

PATIENT
  Sex: Female
  Weight: 60 kg

DRUGS (1)
  1. EXELON [Suspect]
     Indication: DEMENTIA ALZHEIMER'S TYPE
     Dosage: 18 MG/10 CM2, 1 PATCH A DAY
     Route: 062

REACTIONS (3)
  - MULTI-ORGAN FAILURE [None]
  - BLOOD DISORDER [None]
  - PLEURAL DISORDER [None]
